FAERS Safety Report 6569317-9 (Version None)
Quarter: 2010Q1

REPORT INFORMATION
  Report Type: 
  Country: None (occurrence: None)
  Receive Date: 20100129
  Receipt Date: 20100111
  Transmission Date: 20100710
  Serious: Yes (Death)
  Sender: FDA-Public Use
  Company Number: 004685

PATIENT
  Age: 46 Year
  Sex: Female

DRUGS (4)
  1. ALPRAZOLAM [Suspect]
  2. METHADONE HCL [Suspect]
  3. BUTALBITAL [Suspect]
  4. ACETAMINOPHEN AND OXYCODONE HCL [Suspect]

REACTIONS (1)
  - DRUG ABUSE [None]
